FAERS Safety Report 11109895 (Version 1)
Quarter: 2015Q2

REPORT INFORMATION
  Report Type: Spontaneous
  Country: US (occurrence: US)
  Receive Date: 20150513
  Receipt Date: 20150513
  Transmission Date: 20150821
  Serious: Yes (Death)
  Sender: FDA-Public Use
  Company Number: US-CELGENE-USA-2015051737

PATIENT
  Age: 62 Year
  Sex: Female
  Weight: 65.8 kg

DRUGS (1)
  1. REVLIMID [Suspect]
     Active Substance: LENALIDOMIDE
     Indication: LYMPHOMA
     Dosage: 10 MILLIGRAM
     Route: 048
     Dates: start: 20141216, end: 2015

REACTIONS (1)
  - Death [Fatal]

NARRATIVE: CASE EVENT DATE: 20150430
